FAERS Safety Report 22373001 (Version 1)
Quarter: 2023Q2

REPORT INFORMATION
  Report Type: Spontaneous
  Country: US (occurrence: US)
  Receive Date: 20230526
  Receipt Date: 20230526
  Transmission Date: 20230722
  Serious: No
  Sender: FDA-Public Use
  Company Number: US-IDORSIA-005281-2023-US

PATIENT
  Sex: Female

DRUGS (1)
  1. QUVIVIQ [Suspect]
     Active Substance: DARIDOREXANT
     Indication: Insomnia
     Dosage: 50 MG, QD
     Route: 048
     Dates: start: 20230209, end: 202305

REACTIONS (3)
  - Oral herpes [Recovering/Resolving]
  - Palpitations [Recovering/Resolving]
  - Therapeutic product effect decreased [Recovering/Resolving]
